FAERS Safety Report 26205530 (Version 1)
Quarter: 2025Q4

REPORT INFORMATION
  Report Type: Spontaneous
  Country: TW (occurrence: TW)
  Receive Date: 20251228
  Receipt Date: 20251228
  Transmission Date: 20260118
  Serious: Yes (Hospitalization, Other)
  Sender: Haleon PLC
  Company Number: TW-002147023-NVSC2025TW195882

PATIENT
  Age: 90 Year
  Sex: Female
  Weight: 82 kg

DRUGS (4)
  1. CATAFLAM [Suspect]
     Active Substance: DICLOFENAC POTASSIUM
     Indication: Product used for unknown indication
     Dates: start: 20251016, end: 20251017
  2. ELIQUIS [Suspect]
     Active Substance: APIXABAN
     Indication: Hypertension
     Dates: start: 20250416, end: 20251022
  3. ELIQUIS [Suspect]
     Active Substance: APIXABAN
     Indication: Cerebral infarction
  4. ELIQUIS [Suspect]
     Active Substance: APIXABAN
     Indication: Atrial fibrillation

REACTIONS (5)
  - Duodenal ulcer [Unknown]
  - Melaena [Recovered/Resolved]
  - Discoloured vomit [Unknown]
  - Gastrointestinal haemorrhage [Recovered/Resolved]
  - Blood loss anaemia [Unknown]

NARRATIVE: CASE EVENT DATE: 20251017
